FAERS Safety Report 8882255 (Version 3)
Quarter: 2012Q4

REPORT INFORMATION
  Report Type: 
  Country: AU (occurrence: AU)
  Receive Date: 20121102
  Receipt Date: 20121122
  Transmission Date: 20130627
  Serious: Yes (Hospitalization, Other)
  Sender: FDA-Public Use
  Company Number: AU-CELGENEUS-008-20785-12103345

PATIENT
  Age: 92 Year
  Sex: Female

DRUGS (4)
  1. THALOMID [Suspect]
     Indication: ANGIODYSPLASIA OF SMALL INTESTINE
     Dosage: 50 Milligram
     Route: 048
  2. THALOMID [Suspect]
     Indication: OFF LABEL USE
  3. THALOMID [Suspect]
     Indication: GASTROINTESTINAL ANGIODYSPLASIA HAEMORRHAGIC
  4. VITAMIN K [Concomitant]
     Indication: BLEEDING
     Dosage: 10 Milligram
     Route: 065

REACTIONS (19)
  - Urinary tract infection [Recovered/Resolved]
  - Swollen tongue [Recovered/Resolved]
  - Haemorrhage [Not Recovered/Not Resolved]
  - Dehydration [Recovered/Resolved]
  - Swelling face [Recovered/Resolved]
  - Hypertension [Recovered/Resolved]
  - Transient ischaemic attack [Unknown]
  - Blood pressure decreased [Unknown]
  - Dysphagia [Recovered/Resolved]
  - Wheezing [Recovered/Resolved]
  - Oedema peripheral [Unknown]
  - Feeling abnormal [Recovered/Resolved]
  - Asthenia [Recovered/Resolved]
  - Tremor [Recovered/Resolved]
  - Tremor [Not Recovered/Not Resolved]
  - Confusional state [Unknown]
  - Lethargy [Unknown]
  - Memory impairment [Unknown]
  - Weight increased [Recovering/Resolving]
